FAERS Safety Report 8739531 (Version 2)
Quarter: 2014Q1

REPORT INFORMATION
  Report Type: Spontaneous
  Country: US (occurrence: US)
  Receive Date: 20120823
  Receipt Date: 20140203
  Transmission Date: 20141002
  Serious: Yes (Other)
  Sender: FDA-Public Use
  Company Number: PHHY2012US070677

PATIENT
  Age: 24 Year
  Sex: Male

DRUGS (1)
  1. MEFLOQUINE [Suspect]

REACTIONS (31)
  - Drug hypersensitivity [Unknown]
  - Toxicity to various agents [Unknown]
  - Toxic encephalopathy [Unknown]
  - Personality disorder [Unknown]
  - Alanine aminotransferase decreased [Unknown]
  - Photophobia [Unknown]
  - Anxiety [Unknown]
  - Feeling abnormal [Unknown]
  - Paranoia [Unknown]
  - Confusional state [Unknown]
  - Sleep disorder [Unknown]
  - Tinnitus [Unknown]
  - Palpitations [Unknown]
  - Vertigo [Unknown]
  - Balance disorder [Unknown]
  - Hallucination, auditory [Unknown]
  - Delirium [Unknown]
  - Sensory loss [Unknown]
  - Emotional poverty [Unknown]
  - Restlessness [Unknown]
  - Amnesia [Unknown]
  - Personality change [Unknown]
  - Irritability [Unknown]
  - Anger [Unknown]
  - Aggression [Unknown]
  - Suicidal ideation [Unknown]
  - Vestibular disorder [Unknown]
  - Headache [Unknown]
  - Fatigue [Unknown]
  - Illusion [Unknown]
  - Feeling hot [Unknown]
